FAERS Safety Report 5044259-9 (Version None)
Quarter: 2006Q3

REPORT INFORMATION
  Report Type: 
  Country: None (occurrence: None)
  Receive Date: 20060706
  Receipt Date: 20060628
  Transmission Date: 20061208
  Serious: Yes (Other)
  Sender: FDA-Public Use
  Company Number: US-AVENTIS-200615541US

PATIENT
  Sex: Female

DRUGS (4)
  1. ARAVA [Suspect]
     Indication: RHEUMATOID ARTHRITIS
     Dates: start: 20060101, end: 20060101
  2. ARAVA [Suspect]
     Dates: start: 20060101, end: 20060101
  3. FLEXERIL [Suspect]
     Dosage: DOSE: UNK
  4. ENBREL [Concomitant]
     Dosage: DOSE: UNK

REACTIONS (6)
  - AMMONIA INCREASED [None]
  - CONFUSIONAL STATE [None]
  - DISORIENTATION [None]
  - GASTROENTERITIS [None]
  - HEPATIC FAILURE [None]
  - LIVER FUNCTION TEST ABNORMAL [None]
